FAERS Safety Report 7707832-2 (Version None)
Quarter: 2011Q3

REPORT INFORMATION
  Report Type: 
  Country: None (occurrence: None)
  Receive Date: 20110824
  Receipt Date: 20110310
  Transmission Date: 20111222
  Serious: Yes (Other)
  Sender: FDA-Public Use
  Company Number: US-BAYER-201015491NA

PATIENT
  Age: 52 Year
  Sex: Female
  Weight: 66 kg

DRUGS (73)
  1. GADOLINIUM IN UNSPECIFIED DRUG [Suspect]
     Dosage: UNK
     Dates: start: 20000908, end: 20000908
  2. GADOLINIUM IN UNSPECIFIED DRUG [Suspect]
     Dosage: UNK
     Dates: start: 20001019, end: 20001019
  3. GADOLINIUM IN UNSPECIFIED DRUG [Suspect]
     Dosage: UNK
     Dates: start: 20071218, end: 20071218
  4. GADOLINIUM IN UNSPECIFIED DRUG [Suspect]
     Dosage: UNK
     Dates: start: 20080813, end: 20080813
  5. ANTIBIOTICS [Concomitant]
  6. DILANTIN [Concomitant]
  7. AMLODIPINE [Concomitant]
  8. DARBEPOETIN ALFA [Concomitant]
  9. SERTRALINE HYDROCHLORIDE [Concomitant]
  10. OMNIPAQUE 140 [Concomitant]
     Indication: COMPUTERISED TOMOGRAM
     Dosage: 125 ML, UNK
     Dates: start: 20001023, end: 20001023
  11. ISOVUE-128 [Concomitant]
     Dosage: 140 ML, UNK
     Dates: start: 20070209, end: 20070209
  12. GADOLINIUM IN UNSPECIFIED DRUG [Suspect]
     Dosage: UNK
     Dates: start: 20070624, end: 20070624
  13. OMNIPAQUE 140 [Concomitant]
     Dosage: UNK
     Dates: start: 20080930, end: 20080930
  14. ISOVUE-128 [Concomitant]
     Dosage: 97 ML, UNK
     Dates: start: 20020217, end: 20020217
  15. CALCIUM CARBONATE [Concomitant]
  16. HYDROCODONE [Concomitant]
  17. ANTIINFLAMMATORY/ANTIRHEUMATIC PRODUCTS [Concomitant]
  18. PHOSLO [Concomitant]
  19. EPOGEN [Concomitant]
  20. ISOVUE-128 [Concomitant]
     Dosage: 100 ML, UNK
     Dates: start: 20071025, end: 20071025
  21. VICODIN [Concomitant]
  22. MAGNEVIST [Suspect]
     Indication: NUCLEAR MAGNETIC RESONANCE IMAGING
     Dosage: 17 ML, ONCE
     Dates: start: 20070807, end: 20070807
  23. GADOLINIUM IN UNSPECIFIED DRUG [Suspect]
     Dosage: UNK
     Dates: start: 20040521, end: 20040521
  24. NEPHROCAPS [Concomitant]
  25. LISINOPRIL [Concomitant]
  26. OMNIPAQUE 140 [Concomitant]
     Dosage: 100 ML, UNK
     Dates: start: 20060111, end: 20060111
  27. GADOLINIUM IN UNSPECIFIED DRUG [Suspect]
  28. OMNISCAN [Suspect]
     Indication: NUCLEAR MAGNETIC RESONANCE IMAGING
     Dosage: 15 ML, ONCE
     Dates: start: 20050811, end: 20050811
  29. OPTIMARK [Suspect]
     Indication: NUCLEAR MAGNETIC RESONANCE IMAGING
  30. PROHANCE [Suspect]
     Indication: NUCLEAR MAGNETIC RESONANCE IMAGING
  31. VITAMINS NOS [Concomitant]
  32. BLOOD PRESSURE MEDICATION (NOS) [Concomitant]
  33. STEROIDS NOS [Concomitant]
  34. FOLIC ACID [Concomitant]
  35. NORVASC [Concomitant]
  36. TOPROL-XL [Concomitant]
  37. FERRLECIT [Concomitant]
  38. RENAGEL [Concomitant]
  39. OMNIPAQUE 140 [Concomitant]
     Indication: ANGIOGRAM
     Dosage: 10 ML, UNK
     Dates: start: 20000908, end: 20000908
  40. ISOVUE-128 [Concomitant]
     Indication: COMPUTERISED TOMOGRAM
     Dosage: 120 ML, UNK
     Dates: start: 20020114, end: 20020114
  41. ISOVUE-128 [Concomitant]
     Indication: COMPUTERISED TOMOGRAM HEAD
     Dosage: 100 ML, UNK
     Dates: start: 20050804, end: 20050804
  42. ISOVUE-128 [Concomitant]
     Indication: ANGIOGRAM
     Dosage: 100 ML, UNK
     Dates: start: 20060519, end: 20060519
  43. ISOVUE-128 [Concomitant]
     Dosage: 100 ML, UNK
     Dates: start: 20070628, end: 20070628
  44. ISOVUE-128 [Concomitant]
     Dosage: 100 ML, UNK
     Dates: start: 20070709, end: 20070709
  45. HEPARIN [Concomitant]
  46. MAGNEVIST [Suspect]
  47. MULTIHANCE [Suspect]
     Indication: NUCLEAR MAGNETIC RESONANCE IMAGING
  48. PREVACID [Concomitant]
  49. ZEMPLAR [Concomitant]
  50. OMNIPAQUE 140 [Concomitant]
     Dosage: 100 ML, UNK
     Dates: start: 20090602, end: 20090602
  51. ARANESP [Concomitant]
  52. GADOLINIUM IN UNSPECIFIED DRUG [Suspect]
     Dosage: UNK
     Dates: start: 20060306, end: 20060306
  53. IMMUNOSUPPRESSIVE AGENTS [Concomitant]
  54. ANTITHROMBOTIC AGENTS [Concomitant]
  55. PLAVIX [Concomitant]
  56. PREDNISONE [Concomitant]
  57. ZOLPIDEM [Concomitant]
  58. METHOTREXATE [Concomitant]
  59. OMNIPAQUE 140 [Concomitant]
     Indication: VENOGRAM
     Dosage: 100 ML, UNK
     Dates: start: 20001011, end: 20001011
  60. ISOVUE-128 [Concomitant]
     Dosage: 100 ML, UNK
     Dates: start: 20060806, end: 20060806
  61. ISOVUE-128 [Concomitant]
     Dosage: 100 ML, UNK
     Dates: start: 20070924, end: 20070924
  62. TYLOX [Concomitant]
  63. GADOLINIUM IN UNSPECIFIED DRUG [Suspect]
     Dosage: UNK
     Dates: start: 20020330, end: 20020330
  64. GADOLINIUM IN UNSPECIFIED DRUG [Suspect]
     Dosage: UNK
     Dates: start: 20041121, end: 20041121
  65. OMNISCAN [Suspect]
     Indication: NUCLEAR MAGNETIC RESONANCE IMAGING BRAIN
     Dosage: 20 ML, ONCE
     Dates: start: 20090903, end: 20090903
  66. IRON SUPPLEMENT [Concomitant]
  67. REGLAN [Concomitant]
  68. NEURONTIN [Concomitant]
  69. PARICALCITOL [Concomitant]
  70. QUETIAPINE [Concomitant]
  71. OMNIPAQUE 140 [Concomitant]
     Indication: FISTULOGRAM
     Dosage: 117 ML, UNK
     Dates: start: 20071203, end: 20071203
  72. ISOVUE-128 [Concomitant]
     Dosage: 100 ML, UNK
     Dates: start: 20071016, end: 20071016
  73. XANAX [Concomitant]

REACTIONS (28)
  - PAIN OF SKIN [None]
  - ERYTHEMA [None]
  - OEDEMA PERIPHERAL [None]
  - DEFORMITY [None]
  - SKIN TIGHTNESS [None]
  - JOINT RANGE OF MOTION DECREASED [None]
  - DISCOMFORT [None]
  - MUSCULAR WEAKNESS [None]
  - MOBILITY DECREASED [None]
  - SKIN INDURATION [None]
  - BONE PAIN [None]
  - RENAL INJURY [None]
  - NEPHROGENIC SYSTEMIC FIBROSIS [None]
  - SKIN EXFOLIATION [None]
  - SKIN WARM [None]
  - ARTHRALGIA [None]
  - RENAL IMPAIRMENT [None]
  - JOINT SWELLING [None]
  - SKIN HYPERPIGMENTATION [None]
  - PAIN IN EXTREMITY [None]
  - JOINT STIFFNESS [None]
  - SKIN FIBROSIS [None]
  - FIBROSIS [None]
  - PAIN [None]
  - SCAR [None]
  - GENERAL PHYSICAL HEALTH DETERIORATION [None]
  - SKIN HYPERTROPHY [None]
  - DRY SKIN [None]
